FAERS Safety Report 13796351 (Version 3)
Quarter: 2017Q3

REPORT INFORMATION
  Report Type: Spontaneous
  Country: PT (occurrence: PT)
  Receive Date: 20170726
  Receipt Date: 20170921
  Transmission Date: 20171127
  Serious: Yes (Other)
  Sender: FDA-Public Use
  Company Number: PT-BAUSCH-BL-2017-022226

PATIENT
  Age: 30 Year
  Sex: Female

DRUGS (1)
  1. MIOCHOLA 20 MG, PO E SOLVENTE PARA SOLUCAO INTRA-OCULAR [Suspect]
     Active Substance: ACETYLCHOLINE CHLORIDE
     Indication: PRODUCT USED FOR UNKNOWN INDICATION
     Route: 065
     Dates: start: 20170630

REACTIONS (2)
  - Toxic anterior segment syndrome [Recovering/Resolving]
  - Hypersensitivity [Recovering/Resolving]

NARRATIVE: CASE EVENT DATE: 20170701
